FAERS Safety Report 6964838-9 (Version None)
Quarter: 2010Q3

REPORT INFORMATION
  Report Type: 
  Country: None (occurrence: None)
  Receive Date: 20100903
  Receipt Date: 20100826
  Transmission Date: 20110219
  Serious: Yes (Hospitalization)
  Sender: FDA-Public Use
  Company Number: US-BRISTOL-MYERS SQUIBB COMPANY-15236706

PATIENT
  Age: 54 Year
  Sex: Male
  Weight: 87 kg

DRUGS (21)
  1. XL281 [Suspect]
     Indication: METASTATIC MALIGNANT MELANOMA
     Dates: start: 20100527, end: 20100711
  2. CARMUSTINE [Suspect]
     Dates: start: 20100729
  3. CISPLATIN [Suspect]
     Dates: start: 20100729
  4. DACARBAZINE [Suspect]
     Dates: start: 20100729
  5. ONDANSETRON [Concomitant]
  6. DEXAMETHASONE [Concomitant]
     Route: 042
  7. MANNITOL [Concomitant]
  8. NAPROSYN [Concomitant]
     Indication: TUMOUR PAIN
     Dates: start: 20081009
  9. ZOFRAN [Concomitant]
     Indication: NAUSEA
     Dates: start: 20100527, end: 20100721
  10. LEVOTHYROXINE [Concomitant]
     Indication: HYPOTHYROIDISM
     Dates: start: 20081009
  11. COMPAZINE [Concomitant]
     Indication: NAUSEA
     Dates: start: 20100107
  12. SERTRALINE HYDROCHLORIDE [Concomitant]
     Indication: ANXIETY
     Dates: start: 20091216
  13. SERTRALINE HYDROCHLORIDE [Concomitant]
     Indication: DEPRESSION
     Dates: start: 20091216
  14. MORPHINE SULFATE [Concomitant]
     Indication: TUMOUR PAIN
     Dates: start: 20100721
  15. NALTREXONE HYDROCHLORIDE [Concomitant]
     Indication: TUMOUR PAIN
     Dates: start: 20100721
  16. MEDROL [Concomitant]
     Indication: TUMOUR PAIN
     Dates: start: 20100721
  17. IMITREX [Concomitant]
     Dates: start: 20081009, end: 20100721
  18. LYRICA [Concomitant]
     Indication: TUMOUR PAIN
     Dates: start: 20100708, end: 20100721
  19. PERCOCET [Concomitant]
     Indication: PAIN
     Dates: start: 20100204, end: 20100715
  20. MS CONTIN [Concomitant]
     Dates: start: 20100709, end: 20100721
  21. VENTOLIN [Concomitant]
     Indication: DYSPNOEA
     Dates: start: 20091216, end: 20100721

REACTIONS (3)
  - ANAEMIA [None]
  - DEHYDRATION [None]
  - THROMBOCYTOPENIA [None]
